FAERS Safety Report 6445935-3 (Version None)
Quarter: 2009Q4

REPORT INFORMATION
  Report Type: 
  Country: None (occurrence: None)
  Receive Date: 20091119
  Receipt Date: 20090129
  Transmission Date: 20100525
  Serious: No
  Sender: FDA-Public Use
  Company Number: A0765912A

PATIENT
  Age: 54 Year
  Sex: Female

DRUGS (6)
  1. WELLBUTRIN SR [Suspect]
     Indication: DEPRESSION
     Dosage: 150MG PER DAY
     Route: 048
     Dates: start: 20080916
  2. COUMADIN [Concomitant]
  3. LASIX [Concomitant]
  4. POTASSIUM CHLORIDE [Concomitant]
  5. ATIVAN [Concomitant]
  6. PREVACID [Concomitant]

REACTIONS (1)
  - VISION BLURRED [None]
